FAERS Safety Report 16043025 (Version 1)
Quarter: 2019Q1

REPORT INFORMATION
  Report Type: Spontaneous
  Country: CN (occurrence: CN)
  Receive Date: 20190306
  Receipt Date: 20190306
  Transmission Date: 20190418
  Serious: Yes (Other)
  Sender: FDA-Public Use
  Company Number: CN-B.I. PHARMACEUTICALS,INC./RIDGEFIELD-2019-BI-009392

PATIENT
  Age: 1 Month
  Sex: Male
  Weight: 5.5 kg

DRUGS (3)
  1. ATROVENT [Suspect]
     Active Substance: IPRATROPIUM BROMIDE
     Indication: PNEUMONIA
     Dosage: DOSAGE FORM: SPRAY
     Route: 055
     Dates: start: 20190215, end: 20190215
  2. BRICANYL [Suspect]
     Active Substance: TERBUTALINE SULFATE
     Indication: PNEUMONIA
     Dosage: DOSAGE FORM: SPRAY
     Route: 055
     Dates: start: 20190215, end: 20190215
  3. PULMICORT TURBUHALER [Suspect]
     Active Substance: BUDESONIDE
     Indication: PNEUMONIA
     Dosage: DOSAGE FORM: SUSPENSION
     Route: 055
     Dates: start: 20190215, end: 20190215

REACTIONS (1)
  - Seizure [Recovering/Resolving]

NARRATIVE: CASE EVENT DATE: 20190215
